FAERS Safety Report 23371316 (Version 2)
Quarter: 2024Q1

REPORT INFORMATION
  Report Type: Spontaneous
  Country: US (occurrence: US)
  Receive Date: 20240105
  Receipt Date: 20240318
  Transmission Date: 20240410
  Serious: No
  Sender: FDA-Public Use
  Company Number: US-PFIZER INC-PV202400001526

PATIENT
  Age: 62 Year
  Sex: Female
  Weight: 73.016 kg

DRUGS (1)
  1. NURTEC ODT [Suspect]
     Active Substance: RIMEGEPANT SULFATE
     Indication: Migraine
     Dosage: EVERY OTHER DAY
     Route: 048
     Dates: start: 20230919, end: 20240116

REACTIONS (1)
  - Therapeutic product effect incomplete [Unknown]
